FAERS Safety Report 19987740 (Version 3)
Quarter: 2021Q4

REPORT INFORMATION
  Report Type: Spontaneous
  Country: FR (occurrence: FR)
  Receive Date: 20211022
  Receipt Date: 20211231
  Transmission Date: 20220303
  Serious: Yes (Hospitalization, Congenital Anomaly, Other)
  Sender: FDA-Public Use
  Company Number: FR-ABBVIE-21K-056-4129619-00

PATIENT
  Sex: Male

DRUGS (11)
  1. VALPROATE SODIUM [Suspect]
     Active Substance: VALPROATE SODIUM
     Indication: Maternal exposure timing unspecified
     Route: 064
  2. VALIUM [Concomitant]
     Active Substance: DIAZEPAM
     Indication: Maternal exposure timing unspecified
     Route: 064
  3. FOLIC ACID [Concomitant]
     Active Substance: FOLIC ACID
     Indication: Maternal exposure timing unspecified
     Route: 064
  4. ALBUTEROL [Concomitant]
     Active Substance: ALBUTEROL
     Indication: Maternal exposure timing unspecified
     Route: 064
  5. VALPROATE SODIUM [Concomitant]
     Active Substance: VALPROATE SODIUM
     Indication: Product used for unknown indication
  6. TEGRETOL [Concomitant]
     Active Substance: CARBAMAZEPINE
     Indication: Product used for unknown indication
  7. PHENOBARBITAL [Concomitant]
     Active Substance: PHENOBARBITAL
     Indication: Product used for unknown indication
  8. KANEURON [Concomitant]
     Indication: Product used for unknown indication
  9. SABRIL [Concomitant]
     Active Substance: VIGABATRIN
     Indication: Product used for unknown indication
  10. VITAMIN B6 [Concomitant]
     Active Substance: PYRIDOXINE HYDROCHLORIDE
     Indication: Product used for unknown indication
  11. CLOBAZAM [Concomitant]
     Active Substance: CLOBAZAM
     Indication: Product used for unknown indication

REACTIONS (61)
  - Myringitis [Unknown]
  - Epilepsy congenital [Unknown]
  - Intellectual disability [Unknown]
  - Generalised tonic-clonic seizure [Unknown]
  - Foetal anticonvulsant syndrome [Unknown]
  - Deafness congenital [Unknown]
  - Autism spectrum disorder [Unknown]
  - Syndactyly [Unknown]
  - Brachial plexopathy [Unknown]
  - Hypotonia neonatal [Unknown]
  - Dysmorphism [Unknown]
  - Communication disorder [Unknown]
  - Language disorder [Unknown]
  - Behaviour disorder [Unknown]
  - Drooling [Unknown]
  - Bruxism [Unknown]
  - Psychomotor retardation [Unknown]
  - Renal hypertrophy [Unknown]
  - Cerebral ventricle dilatation [Unknown]
  - Haemangioma [Unknown]
  - Joint laxity [Unknown]
  - Scoliosis [Unknown]
  - Pectus excavatum [Unknown]
  - Foot deformity [Unknown]
  - Tooth malformation [Unknown]
  - Aphasia [Unknown]
  - Angelman^s syndrome [Unknown]
  - Impulsive behaviour [Unknown]
  - Movement disorder [Unknown]
  - Disorientation [Unknown]
  - Social avoidant behaviour [Unknown]
  - Developmental delay [Unknown]
  - Stereotypy [Unknown]
  - Frustration tolerance decreased [Unknown]
  - Mood altered [Unknown]
  - Joint dislocation [Unknown]
  - Myopia [Unknown]
  - Audiogram abnormal [Unknown]
  - Upper respiratory tract infection [Unknown]
  - Infection [Unknown]
  - Personal relationship issue [Unknown]
  - Visual impairment [Unknown]
  - Ear disorder [Unknown]
  - Anxiety [Unknown]
  - Oropharyngeal discomfort [Unknown]
  - Myalgia [Unknown]
  - Arthralgia [Unknown]
  - Otitis media [Unknown]
  - Fatigue [Unknown]
  - Nasal disorder [Unknown]
  - Ear infection [Unknown]
  - Rhinitis [Unknown]
  - Pharyngitis [Unknown]
  - Pharyngeal disorder [Unknown]
  - Encephalopathy [Unknown]
  - Seizure [Unknown]
  - Disability [Unknown]
  - Fatigue [Unknown]
  - Autism spectrum disorder [Unknown]
  - Decreased appetite [Unknown]
  - Foetal exposure during pregnancy [Unknown]

NARRATIVE: CASE EVENT DATE: 19970201
